FAERS Safety Report 15180490 (Version 1)
Quarter: 2018Q3

REPORT INFORMATION
  Report Type: Spontaneous
  Country: US (occurrence: US)
  Receive Date: 20180723
  Receipt Date: 20180723
  Transmission Date: 20181010
  Serious: No
  Sender: FDA-Public Use
  Company Number: US-ASTRAZENECA-2018SE84058

PATIENT
  Sex: Female

DRUGS (1)
  1. FASENRA [Suspect]
     Active Substance: BENRALIZUMAB
     Route: 042

REACTIONS (7)
  - Swollen tongue [Unknown]
  - Scar [Unknown]
  - Oropharyngeal pain [Unknown]
  - Insomnia [Unknown]
  - Pharyngitis streptococcal [Unknown]
  - Tremor [Unknown]
  - Speech disorder [Unknown]
